FAERS Safety Report 5819961-9 (Version None)
Quarter: 2008Q3

REPORT INFORMATION
  Report Type: 
  Country: None (occurrence: None)
  Receive Date: 20080721
  Receipt Date: 20080709
  Transmission Date: 20090109
  Serious: Yes (Hospitalization)
  Sender: FDA-Public Use
  Company Number: 2008001629

PATIENT
  Age: 75 Year
  Sex: Female

DRUGS (3)
  1. ERLOTINIB (ERLOTINIB) (TABLET) (ERLOTINIB) [Suspect]
     Indication: PANCREATIC CARCINOMA
     Dosage: 150 MG, QD, DAYS 1-28, ORAL
     Route: 048
     Dates: start: 20080311, end: 20080601
  2. SORAFENIB [Suspect]
     Dosage: 400 MG, QD DAYS 1-28, ORAL
     Route: 048
     Dates: start: 20080311, end: 20080601
  3. GEMCITABINE [Concomitant]

REACTIONS (7)
  - CANDIDIASIS [None]
  - DYSPNOEA [None]
  - LUNG INFECTION [None]
  - MALIGNANT NEOPLASM PROGRESSION [None]
  - METASTASES TO LUNG [None]
  - OXYGEN SATURATION DECREASED [None]
  - PYREXIA [None]
